FAERS Safety Report 9502217 (Version 1)
Quarter: 2013Q3

REPORT INFORMATION
  Report Type: Spontaneous
  Country: IT (occurrence: IT)
  Receive Date: 20130906
  Receipt Date: 20130906
  Transmission Date: 20140515
  Serious: Yes (Hospitalization)
  Sender: FDA-Public Use
  Company Number: IT-ROCHE-1270804

PATIENT
  Age: 52 Year
  Sex: Male

DRUGS (4)
  1. NAPROSYN [Suspect]
     Indication: PRODUCT USED FOR UNKNOWN INDICATION
     Route: 048
     Dates: start: 20130429, end: 20130729
  2. ENAPREN [Suspect]
     Indication: HYPERTENSION
     Route: 048
     Dates: start: 20130701, end: 20130729
  3. LOBIDIUR [Suspect]
     Indication: HYPERTENSION
     Route: 048
     Dates: start: 20130429, end: 20130729
  4. ZYLORIC [Concomitant]
     Indication: GOUT
     Route: 048

REACTIONS (3)
  - Blood creatinine increased [Not Recovered/Not Resolved]
  - Hyperkalaemia [Recovered/Resolved]
  - Electrocardiogram change [Not Recovered/Not Resolved]
